FAERS Safety Report 4633903-3 (Version None)
Quarter: 2005Q2

REPORT INFORMATION
  Report Type: 
  Country: None (occurrence: None)
  Receive Date: 20050407
  Receipt Date: 20050325
  Transmission Date: 20051028
  Serious: Yes (Death)
  Sender: FDA-Public Use
  Company Number: 05P-087-0295294-00

PATIENT
  Age: 18 Month
  Sex: Female
  Weight: 9 kg

DRUGS (2)
  1. ULTANE [Suspect]
     Indication: ANAESTHESIA
  2. VECURONIUM BROMIDE [Concomitant]

REACTIONS (9)
  - BRADYCARDIA [None]
  - CARDIAC ARREST [None]
  - HAEMODIALYSIS [None]
  - HYPERKALAEMIA [None]
  - HYPERTHERMIA MALIGNANT [None]
  - METABOLIC ACIDOSIS [None]
  - MULTI-ORGAN FAILURE [None]
  - MUSCLE RIGIDITY [None]
  - PROCEDURAL COMPLICATION [None]
